FAERS Safety Report 19158533 (Version 1)
Quarter: 2021Q2

REPORT INFORMATION
  Report Type: Spontaneous
  Country: US (occurrence: US)
  Receive Date: 20210419
  Receipt Date: 20210419
  Transmission Date: 20210717
  Serious: No
  Sender: FDA-Public Use
  Company Number: None

PATIENT
  Age: 51 Year
  Sex: Female
  Weight: 110.7 kg

DRUGS (7)
  1. WATER PILL [Concomitant]
     Active Substance: UNSPECIFIED INGREDIENT
  2. THYROID MEDS [Concomitant]
  3. VITAMIN C COMPLEX [ASCORBIC ACID;RUTOSIDE] [Concomitant]
     Active Substance: ASCORBIC ACID\RUTIN
  4. IBUPROFEN. [Concomitant]
     Active Substance: IBUPROFEN
  5. SAXENDA [Suspect]
     Active Substance: LIRAGLUTIDE
     Indication: WEIGHT DECREASED
     Dosage: ?          QUANTITY:1 INJECTION(S);OTHER ROUTE:SUBCUTANEOUS?
     Dates: start: 20210320, end: 20210417
  6. WELLBUTRIN [Concomitant]
     Active Substance: BUPROPION HYDROCHLORIDE
  7. VITAMIN B COMPLEX [Concomitant]
     Active Substance: CYANOCOBALAMIN\DEXPANTHENOL\NIACINAMIDE\PYRIDOXINE HYDROCHLORIDE\RIBOFLAVIN 5^-PHOSPHATE SODIUM\THIAMINE HYDROCHLORIDE\VITAMIN B COMPLEX

REACTIONS (3)
  - Palpitations [None]
  - Nausea [None]
  - Weight decreased [None]
